FAERS Safety Report 4735885-2 (Version None)
Quarter: 2005Q3

REPORT INFORMATION
  Report Type: 
  Country: None (occurrence: None)
  Receive Date: 20050804
  Receipt Date: 20050804
  Transmission Date: 20060218
  Serious: Yes (Hospitalization)
  Sender: FDA-Public Use
  Company Number: None

PATIENT
  Age: 8 Year
  Sex: Male
  Weight: 46.1 kg

DRUGS (10)
  1. GEODON [Suspect]
     Indication: AGGRESSION
     Dosage: 20 MG Q A.M. ORAL
     Route: 048
     Dates: start: 20040801, end: 20040801
  2. GEODON [Suspect]
     Indication: DEPRESSION
     Dosage: 20 MG Q A.M. ORAL
     Route: 048
     Dates: start: 20040801, end: 20040801
  3. GEODON [Suspect]
     Indication: NEGATIVISM
     Dosage: 20 MG Q A.M. ORAL
     Route: 048
     Dates: start: 20040801, end: 20040801
  4. GEODON [Suspect]
     Dosage: 40 MG QP.M. ORAL
     Route: 048
     Dates: start: 20040801, end: 20050801
  5. DEPAKOTE [Concomitant]
  6. ZOLOFT [Concomitant]
  7. FOCALIN [Concomitant]
  8. ADVAIR DISKUS 100/50 [Concomitant]
  9. SINGULAIR [Concomitant]
  10. ALBUTEROL [Concomitant]

REACTIONS (3)
  - FOAMING AT MOUTH [None]
  - LOSS OF CONSCIOUSNESS [None]
  - MOVEMENT DISORDER [None]
